FAERS Safety Report 8058577-3 (Version None)
Quarter: 2012Q1

REPORT INFORMATION
  Report Type: 
  Country: None (occurrence: None)
  Receive Date: 20120120
  Receipt Date: 20120106
  Transmission Date: 20120608
  Serious: Yes (Life-Threatening)
  Sender: FDA-Public Use
  Company Number: US-MYLANLABS-2012S1000694

PATIENT
  Age: 20 Year
  Sex: Male

DRUGS (4)
  1. PREDNISONE [Concomitant]
     Indication: MULTIPLE SCLEROSIS RELAPSE
     Route: 048
  2. GILENYA [Interacting]
     Indication: MULTIPLE SCLEROSIS RELAPSE
     Route: 048
  3. RISPERIDONE [Suspect]
     Indication: PSYCHOPATHIC PERSONALITY
     Dosage: 0.25MG EVERY MORNING
     Route: 065
  4. RISPERIDONE [Interacting]
     Dosage: 1MG EVERY EVENING
     Route: 065

REACTIONS (6)
  - CARDIAC ARREST [None]
  - CONVULSION [None]
  - NAUSEA [None]
  - MALAISE [None]
  - BRADYCARDIA [None]
  - DRUG INTERACTION [None]
